FAERS Safety Report 20237083 (Version 7)
Quarter: 2022Q1

REPORT INFORMATION
  Report Type: Spontaneous
  Country: US (occurrence: US)
  Receive Date: 20211228
  Receipt Date: 20220313
  Transmission Date: 20220424
  Serious: Yes (Other)
  Sender: FDA-Public Use
  Company Number: US-JNJFOC-20211244889

PATIENT
  Age: 23 Year
  Sex: Female
  Weight: 52.210 kg

DRUGS (2)
  1. STELARA [Suspect]
     Active Substance: USTEKINUMAB
     Indication: Crohn^s disease
     Dosage: UNITS INVOLVED- 2 UNITS
     Route: 042
     Dates: start: 20210911
  2. STELARA [Suspect]
     Active Substance: USTEKINUMAB
     Dosage: UNITS INVOLVED- 2 UNITS
     Route: 042
     Dates: start: 20210911

REACTIONS (9)
  - Loss of consciousness [Recovered/Resolved]
  - Infusion related reaction [Recovered/Resolved]
  - Product contamination [Unknown]
  - Flushing [Recovered/Resolved]
  - Pallor [Recovered/Resolved]
  - Dyspnoea [Recovered/Resolved]
  - Nausea [Recovered/Resolved]
  - Cough [Recovered/Resolved]
  - Blood pressure decreased [Recovered/Resolved]

NARRATIVE: CASE EVENT DATE: 20210911
